FAERS Safety Report 7568755-5 (Version None)
Quarter: 2011Q2

REPORT INFORMATION
  Report Type: 
  Country: None (occurrence: None)
  Receive Date: 20110623
  Receipt Date: 20110616
  Transmission Date: 20111010
  Serious: Yes (Hospitalization)
  Sender: FDA-Public Use
  Company Number: CO-B.I. PHARMACEUTICALS,INC./RIDGEFIELD-2011-RA-00191RA

PATIENT
  Sex: Female

DRUGS (10)
  1. NIMODIPINO [Concomitant]
     Indication: HYPERTENSION
     Dosage: 30 MG
     Route: 048
  2. LOSARTAN POTASSIUM [Concomitant]
     Indication: HYPERTENSION
     Dosage: 50 MG
     Route: 048
  3. METOPROLOL TARTRATE [Concomitant]
     Indication: HYPERTENSION
     Dosage: 150 MG
     Route: 048
  4. CARBIDOPA + LEVODOPA [Concomitant]
     Indication: PARKINSON'S DISEASE
     Dosage: STRENGTH: 25/100 MG; DAILY DOSE: 75/300 MG
     Route: 048
  5. HYDROCHLOROTHIAZIDE [Concomitant]
     Indication: HYPERTENSION
     Dosage: 25 MG
     Route: 048
  6. OMEPRAZOLE [Concomitant]
     Indication: GASTRITIS PROPHYLAXIS
     Dosage: 20 MG
     Route: 048
  7. LOVASTATIN [Concomitant]
     Dosage: 20 MG
     Route: 048
  8. PRADAXA [Suspect]
     Indication: CEREBROVASCULAR ACCIDENT PROPHYLAXIS
     Dosage: 220 MG
     Route: 048
     Dates: start: 20110428
  9. CAPTOPRIL [Concomitant]
     Indication: HYPERTENSION
     Dosage: 25 MG
     Route: 048
  10. LORAZEPAM [Concomitant]
     Indication: ANXIETY
     Dosage: 1 MG
     Route: 048

REACTIONS (2)
  - DIZZINESS [None]
  - CEREBROVASCULAR ACCIDENT [None]
